FAERS Safety Report 23931330 (Version 1)
Quarter: 2024Q2

REPORT INFORMATION
  Report Type: Spontaneous
  Country: US (occurrence: US)
  Receive Date: 20240603
  Receipt Date: 20240603
  Transmission Date: 20240716
  Serious: No
  Sender: FDA-Public Use
  Company Number: US-STRIDES ARCOLAB LIMITED-2023SP006950

PATIENT
  Sex: Female

DRUGS (2)
  1. VANCOMYCIN [Suspect]
     Active Substance: VANCOMYCIN
     Indication: Colitis ulcerative
     Dosage: 125 MILLIGRAM, QID (FOR 4-8 WEEKS TO INDUCE REMISSION)
     Route: 048
  2. VANCOMYCIN [Suspect]
     Active Substance: VANCOMYCIN
     Dosage: 125 MILLIGRAM, TID (3 THRICE DAILY AS MAINTENANCE)
     Route: 048

REACTIONS (1)
  - Off label use [Unknown]
